FAERS Safety Report 5245319-X (Version None)
Quarter: 2007Q1

REPORT INFORMATION
  Report Type: 
  Country: None (occurrence: None)
  Receive Date: 20070223
  Receipt Date: 20070214
  Transmission Date: 20070707
  Serious: Yes (Hospitalization)
  Sender: FDA-Public Use
  Company Number: FR-GLAXOSMITHKLINE-B0458738A

PATIENT
  Sex: Female

DRUGS (9)
  1. PAROXETINE HCL [Suspect]
     Route: 065
     Dates: start: 20060101, end: 20061201
  2. EUPRESSYL [Concomitant]
     Route: 065
     Dates: start: 20060101, end: 20061201
  3. OMEPRAZOLE [Concomitant]
     Route: 065
     Dates: start: 20060101
  4. DAFALGAN [Concomitant]
     Route: 065
     Dates: start: 20060101
  5. ACUPAN [Concomitant]
     Route: 065
     Dates: start: 20060101
  6. DEBRIDAT [Concomitant]
     Route: 065
     Dates: start: 20060101
  7. PRIMPERAN [Concomitant]
     Route: 065
     Dates: start: 20060101
  8. FORLAX [Concomitant]
     Route: 065
     Dates: start: 20060101
  9. OFLOCET [Concomitant]
     Route: 065
     Dates: start: 20060101

REACTIONS (2)
  - CHOLESTASIS [None]
  - HEPATOCELLULAR DAMAGE [None]
